FAERS Safety Report 7432918-X (Version None)
Quarter: 2011Q2

REPORT INFORMATION
  Report Type: 
  Country: None (occurrence: None)
  Receive Date: 20110422
  Receipt Date: 20110415
  Transmission Date: 20111010
  Serious: No
  Sender: FDA-Public Use
  Company Number: US-PFIZER INC-2011084304

PATIENT
  Age: 84 Year
  Sex: Female
  Weight: 56.236 kg

DRUGS (1)
  1. NORVASC [Suspect]
     Indication: HYPERTENSION
     Dosage: UNK
     Dates: start: 20091210, end: 20100501

REACTIONS (1)
  - OEDEMA PERIPHERAL [None]
